FAERS Safety Report 13499627 (Version 1)
Quarter: 2017Q2

REPORT INFORMATION
  Report Type: Spontaneous
  Country: US (occurrence: US)
  Receive Date: 20170501
  Receipt Date: 20170501
  Transmission Date: 20170830
  Serious: Yes (Hospitalization)
  Sender: FDA-Public Use
  Company Number: US-MALLINCKRODT-T201701895

PATIENT
  Age: 56 Year
  Sex: Male

DRUGS (5)
  1. HYDROMORPHONE HYDROCHLORIDE. [Suspect]
     Active Substance: HYDROMORPHONE HYDROCHLORIDE
     Indication: HYPERAESTHESIA
     Dosage: 12 MG
     Route: 048
  2. FENTANYL TRANSDERMAL SYSTEM [Suspect]
     Active Substance: FENTANYL
     Indication: HYPERAESTHESIA
     Dosage: 12.5 UG/HR
     Route: 062
  3. HYDROMORPHONE [Suspect]
     Active Substance: HYDROMORPHONE
     Indication: HYPERAESTHESIA
     Dosage: 30 MG
     Route: 042
  4. FENTANYL. [Suspect]
     Active Substance: FENTANYL
     Indication: HYPERAESTHESIA
     Dosage: 500 UG
     Route: 042
  5. MORPHINE [Suspect]
     Active Substance: MORPHINE
     Indication: HYPERAESTHESIA
     Dosage: 30 MG
     Route: 065

REACTIONS (1)
  - Hyperaesthesia [Recovered/Resolved]
